FAERS Safety Report 4678330-8 (Version None)
Quarter: 2005Q2

REPORT INFORMATION
  Report Type: 
  Country: None (occurrence: None)
  Receive Date: 20050601
  Receipt Date: 20041028
  Transmission Date: 20051028
  Serious: Yes (Hospitalization)
  Sender: FDA-Public Use
  Company Number: FRWYE119518OCT04

PATIENT
  Sex: Female

DRUGS (4)
  1. ENBREL [Suspect]
     Indication: RHEUMATOID ARTHRITIS
     Route: 058
     Dates: start: 20040507, end: 20040930
  2. CITALOPRAM HYDROBROMIDE [Concomitant]
     Route: 048
     Dates: start: 20040101
  3. NEXIUM [Concomitant]
     Route: 048
     Dates: start: 20040101, end: 20041001
  4. XANAX [Concomitant]
     Route: 048
     Dates: start: 20040101

REACTIONS (9)
  - ATRIAL FIBRILLATION [None]
  - COLITIS ULCERATIVE [None]
  - ESCHERICHIA BACTERAEMIA [None]
  - ESCHERICHIA URINARY TRACT INFECTION [None]
  - FOOD ALLERGY [None]
  - HYPERTENSION [None]
  - RECTAL HAEMORRHAGE [None]
  - URTICARIA [None]
  - VOMITING [None]
